FAERS Safety Report 8156640-X (Version None)
Quarter: 2012Q1

REPORT INFORMATION
  Report Type: 
  Country: None (occurrence: None)
  Receive Date: 20120222
  Receipt Date: 20120214
  Transmission Date: 20120608
  Serious: Yes (Hospitalization)
  Sender: FDA-Public Use
  Company Number: PHHO2012DE002847

PATIENT
  Age: 74 Year
  Sex: Male
  Weight: 79 kg

DRUGS (17)
  1. METFORMIN HCL [Concomitant]
     Dosage: UNK
     Dates: start: 20090101
  2. BISOPROLOL FUMARATE [Concomitant]
     Dosage: UNK
     Dates: start: 20090101
  3. ZOLEDRONIC ACID [Concomitant]
     Dosage: UNK
     Dates: start: 20090101
  4. INSULIN [Concomitant]
     Dosage: UNK
     Dates: start: 20100101
  5. TAMSULOSIN HCL [Concomitant]
     Dosage: UNK
     Dates: start: 20050101
  6. DEXAMETHASONE [Suspect]
     Indication: MULTIPLE MYELOMA
     Dosage: 20 MG, UNK
     Dates: start: 20110801, end: 20111222
  7. ACETYLSALICYLIC ACID SRT [Concomitant]
     Dosage: UNK
     Dates: start: 20050401
  8. ZOLPIDEM [Concomitant]
     Dosage: UNK
     Dates: start: 20090301
  9. FENTANYL [Concomitant]
     Dosage: UNK
     Dates: start: 20090101
  10. HUMALOG [Concomitant]
     Dosage: UNK
     Dates: start: 20100101
  11. BORTEZOMIB [Concomitant]
     Indication: MULTIPLE MYELOMA
     Dosage: 1 MG, UNK
     Dates: start: 20110801, end: 20111222
  12. LEVEMIR [Concomitant]
     Dosage: UNK
     Dates: start: 20100101
  13. BENFOTIAMINE [Concomitant]
     Dosage: UNK
     Dates: start: 20090101
  14. LACTULOSE [Concomitant]
     Dosage: UNK
     Dates: start: 20111114
  15. ACYCLOVIR [Concomitant]
     Dosage: UNK
     Dates: start: 20090401
  16. CARBIMAZOLE [Concomitant]
     Dosage: UNK
     Dates: start: 20090101
  17. PANTOPRAZOLE [Concomitant]
     Dosage: UNK
     Dates: start: 20090101

REACTIONS (1)
  - SUICIDE ATTEMPT [None]
